FAERS Safety Report 24242596 (Version 1)
Quarter: 2024Q3

REPORT INFORMATION
  Report Type: Spontaneous
  Country: US (occurrence: US)
  Receive Date: 20240823
  Receipt Date: 20240823
  Transmission Date: 20241016
  Serious: Yes (Other)
  Sender: FRESENIUS KABI
  Company Number: US-FreseniusKabi-FK202412606

PATIENT
  Age: 28 Year
  Sex: Male

DRUGS (1)
  1. VINBLASTINE SULFATE [Suspect]
     Active Substance: VINBLASTINE SULFATE
     Indication: Hodgkin^s disease
     Dosage: INJECTION?LOT EXPIRATION DATE: ASKED BUT UNKNOWN?ROUTE OF ADMIN.: ASKED BUT UNKNOWN?DOSAGE(DOSE AND

REACTIONS (2)
  - Neuropathy peripheral [Unknown]
  - Motor dysfunction [Unknown]
